FAERS Safety Report 14193306 (Version 4)
Quarter: 2017Q4

REPORT INFORMATION
  Report Type: Spontaneous
  Country: GB (occurrence: GB)
  Receive Date: 20171116
  Receipt Date: 20171120
  Transmission Date: 20180321
  Serious: Yes (Death)
  Sender: FDA-Public Use
  Company Number: GB-CONCORDIA PHARMACEUTICALS INC.-GSH201603-001393

PATIENT
  Age: 33 Year
  Sex: Male

DRUGS (6)
  1. PREDNISOLONE. [Suspect]
     Active Substance: PREDNISOLONE
     Dosage: 7.5-12.5 MG/DAY
  2. METHOTREXATE. [Suspect]
     Active Substance: METHOTREXATE
  3. TRIAMCINOLONE [Suspect]
     Active Substance: TRIAMCINOLONE
     Dosage: 40-80 MG AT 4-6 WEEK INTERVALS
     Route: 030
  4. PREDNISOLONE. [Suspect]
     Active Substance: PREDNISOLONE
     Dosage: 2.5-20MG/DAY
  5. PREDNISOLONE. [Suspect]
     Active Substance: PREDNISOLONE
  6. THEOPHYLLINE [Concomitant]
     Active Substance: THEOPHYLLINE ANHYDROUS
     Dosage: 1.2 G/DAY

REACTIONS (2)
  - Disseminated intravascular coagulation [Fatal]
  - Varicella zoster virus infection [Fatal]
